FAERS Safety Report 6138062-6 (Version None)
Quarter: 2009Q1

REPORT INFORMATION
  Report Type: 
  Country: None (occurrence: None)
  Receive Date: 20090331
  Receipt Date: 20090130
  Transmission Date: 20090719
  Serious: Yes (Death)
  Sender: FDA-Public Use
  Company Number: US-TYCO HEALTHCARE/MALLINCKRODT-T200900498

PATIENT
  Age: 65 Year
  Sex: Male

DRUGS (8)
  1. METHYLIN [Suspect]
     Route: 048
  2. ACETAMINOPHEN AND CODEINE PHOSPHATE [Suspect]
     Route: 048
  3. TRANYLCYPROMINE SULFATE [Suspect]
     Route: 048
  4. AMPHETAMINE AND DEXTROAMPHETAMINE SALTS [Suspect]
     Route: 048
  5. CARBON MONOXIDE [Suspect]
     Route: 048
  6. MODAFINIL [Suspect]
     Route: 048
  7. ZOLPIDEM [Suspect]
     Route: 048
  8. TIAGABINE HCL [Suspect]
     Route: 048

REACTIONS (1)
  - COMPLETED SUICIDE [None]
